FAERS Safety Report 8679739 (Version 2)
Quarter: 2013Q4

REPORT INFORMATION
  Report Type: Spontaneous
  Country: US (occurrence: US)
  Receive Date: 20120724
  Receipt Date: 20131101
  Transmission Date: 20140711
  Serious: Yes (Other)
  Sender: FDA-Public Use
  Company Number: US-009507513-2012SP024294

PATIENT
  Age: 50 Year
  Sex: Female

DRUGS (5)
  1. SAPHRIS [Suspect]
     Indication: HALLUCINATION
     Dosage: 5 MG, UNK
     Route: 060
     Dates: start: 20111108
  2. SAPHRIS [Suspect]
     Indication: PSYCHOTIC DISORDER
  3. TOPAMAX [Concomitant]
     Dosage: UNK UNK, HS
  4. ESKALITH [Concomitant]
     Dosage: UNK, BID
  5. ESKALITH [Concomitant]
     Dosage: 675 MG, UNK

REACTIONS (2)
  - Pulmonary hypertension [Unknown]
  - Underdose [Unknown]
